FAERS Safety Report 8072856-5 (Version None)
Quarter: 2012Q1

REPORT INFORMATION
  Report Type: 
  Country: None (occurrence: None)
  Receive Date: 20120126
  Receipt Date: 20120120
  Transmission Date: 20120608
  Serious: Yes (Life-Threatening)
  Sender: FDA-Public Use
  Company Number: FR-PFIZER INC-2012020612

PATIENT
  Age: 90 Year
  Sex: Female

DRUGS (11)
  1. ASPEGIC 325 [Suspect]
     Dosage: UNK
     Route: 048
     Dates: start: 20120102, end: 20120109
  2. ACETAMINOPHEN [Concomitant]
     Dosage: UNK
     Dates: start: 20120102
  3. OFLOXACIN [Suspect]
     Indication: URINARY TRACT INFECTION
     Dosage: 400 MG, DAILY
     Route: 048
     Dates: start: 20111222, end: 20111227
  4. CEFTRIAXONE SODIUM [Suspect]
     Dosage: 1 G, UNK
     Route: 058
     Dates: start: 20120106, end: 20120108
  5. LASIX [Concomitant]
     Dosage: UNK
     Dates: start: 20111222
  6. PANTOPRAZOLE [Suspect]
     Dosage: 20 MG, DAILY
     Route: 048
     Dates: start: 20120102, end: 20120109
  7. ENOXAPARIN SODIUM [Suspect]
     Dosage: 1 DF, UNK
     Route: 058
     Dates: start: 20120102, end: 20120109
  8. ARIMIDEX [Concomitant]
  9. DEROXAT [Concomitant]
     Dosage: UNK
     Dates: start: 20120102
  10. METFORMIN HCL [Concomitant]
  11. ATORVASTATIN [Concomitant]
     Dosage: UNK
     Dates: start: 20111222

REACTIONS (2)
  - THROMBOCYTOPENIA [None]
  - RENAL FAILURE ACUTE [None]
